FAERS Safety Report 20556706 (Version 5)
Quarter: 2024Q4

REPORT INFORMATION
  Report Type: Spontaneous
  Country: US (occurrence: US)
  Receive Date: 20220307
  Receipt Date: 20241113
  Transmission Date: 20250114
  Serious: Yes (Hospitalization, Disabling, Other)
  Sender: ORGANON
  Company Number: US-ORGANON-O2203USA000357

PATIENT
  Sex: Male

DRUGS (2)
  1. SINGULAIR [Suspect]
     Active Substance: MONTELUKAST SODIUM
     Indication: Asthma
     Dosage: UNK
     Route: 048
     Dates: start: 2008, end: 2012
  2. SINGULAIR [Suspect]
     Active Substance: MONTELUKAST SODIUM
     Dosage: 10 MILLIGRAM, ONCE DAILY
     Route: 048
     Dates: start: 2010, end: 2020

REACTIONS (36)
  - Suicidal ideation [Recovered/Resolved]
  - Intentional self-injury [Not Recovered/Not Resolved]
  - Suicide attempt [Unknown]
  - Major depression [Not Recovered/Not Resolved]
  - Obsessive-compulsive disorder [Not Recovered/Not Resolved]
  - Learning disorder [Not Recovered/Not Resolved]
  - Neuropsychological symptoms [Not Recovered/Not Resolved]
  - Anxiety [Not Recovered/Not Resolved]
  - Depression [Recovering/Resolving]
  - Agitation [Not Recovered/Not Resolved]
  - Tic [Not Recovered/Not Resolved]
  - Tremor [Not Recovered/Not Resolved]
  - Dysphemia [Not Recovered/Not Resolved]
  - Substance abuse [Not Recovered/Not Resolved]
  - Post-traumatic stress disorder [Not Recovered/Not Resolved]
  - Hallucination, auditory [Recovered/Resolved]
  - Hallucination, visual [Recovered/Resolved]
  - Drug dependence [Unknown]
  - Hallucination [Recovered/Resolved]
  - Paranoia [Not Recovered/Not Resolved]
  - Mood swings [Recovered/Resolved]
  - Affective disorder [Unknown]
  - Psychophysiologic insomnia [Unknown]
  - Learning disability [Unknown]
  - Gastrooesophageal reflux disease [Unknown]
  - Dysphoria [Unknown]
  - Depressed mood [Recovering/Resolving]
  - Feeling of despair [Recovered/Resolved]
  - Feelings of worthlessness [Not Recovered/Not Resolved]
  - Asthenia [Not Recovered/Not Resolved]
  - Apathy [Not Recovered/Not Resolved]
  - Decreased appetite [Recovered/Resolved]
  - Poor quality sleep [Recovering/Resolving]
  - Middle insomnia [Not Recovered/Not Resolved]
  - Irritability [Not Recovered/Not Resolved]
  - Anger [Unknown]

NARRATIVE: CASE EVENT DATE: 20100101
